FAERS Safety Report 7718645-X (Version None)
Quarter: 2011Q3

REPORT INFORMATION
  Report Type: 
  Country: None (occurrence: None)
  Receive Date: 20110830
  Receipt Date: 20110826
  Transmission Date: 20111222
  Serious: No
  Sender: FDA-Public Use
  Company Number: US-TEVA-298458USA

PATIENT
  Sex: Female
  Weight: 59.02 kg

DRUGS (5)
  1. PLAN B ONE-STEP [Suspect]
     Indication: POST COITAL CONTRACEPTION
     Dosage: 1.5 MILLIGRAM;
     Route: 048
     Dates: start: 20110826, end: 20110826
  2. KLONOPIN [Concomitant]
     Indication: ANXIETY
     Route: 048
  3. ADDERALL 5 [Concomitant]
     Indication: ATTENTION DEFICIT/HYPERACTIVITY DISORDER
     Route: 048
  4. EFFEXOR [Concomitant]
     Indication: DEPRESSION
     Route: 048
  5. VITAMIN B-12 [Concomitant]
     Indication: MEDICAL DIET
     Route: 048

REACTIONS (1)
  - NAUSEA [None]
